FAERS Safety Report 7900294-1 (Version None)
Quarter: 2011Q4

REPORT INFORMATION
  Report Type: 
  Country: None (occurrence: None)
  Receive Date: 20111108
  Receipt Date: 20101209
  Transmission Date: 20120403
  Serious: No
  Sender: FDA-Public Use
  Company Number: US-BAYER-2010-009365

PATIENT
  Age: 55 Year
  Sex: Female

DRUGS (1)
  1. CLIMARA [Suspect]
     Indication: MENOPAUSAL DISORDER
     Dosage: 0.06 MG, QD

REACTIONS (2)
  - ERYTHEMA [None]
  - PRODUCT ADHESION ISSUE [None]
